FAERS Safety Report 10901601 (Version 1)
Quarter: 2015Q1

REPORT INFORMATION
  Report Type: Spontaneous
  Country: US (occurrence: None)
  Receive Date: 20150303
  Receipt Date: 20150303
  Transmission Date: 20150721
  Serious: No
  Sender: FDA-Public Use
  Company Number: None

PATIENT
  Age: 43 Year
  Sex: Female
  Weight: 68.49 kg

DRUGS (14)
  1. MONTELUKAST [Concomitant]
     Active Substance: MONTELUKAST SODIUM
  2. COQ10 [Concomitant]
     Active Substance: UBIDECARENONE
  3. RIZATRIPTAN [Concomitant]
     Active Substance: RIZATRIPTAN
  4. MAGNESIUM [Concomitant]
     Active Substance: MAGNESIUM
  5. ZINC [Concomitant]
     Active Substance: ZINC\ZINC CHLORIDE
  6. TOPIRAMATE. [Concomitant]
     Active Substance: TOPIRAMATE
  7. PRENATAL VITAMIN [Concomitant]
     Active Substance: VITAMINS
  8. VITAMIN D3 [Concomitant]
     Active Substance: CHOLECALCIFEROL
  9. TURMERIC [Concomitant]
     Active Substance: TURMERIC
  10. MINOXIDIL. [Suspect]
     Active Substance: MINOXIDIL
     Indication: ALOPECIA
     Dates: start: 20150221, end: 20150225
  11. BIOTIN [Concomitant]
     Active Substance: BIOTIN
  12. FLONASE [Concomitant]
     Active Substance: FLUTICASONE PROPIONATE
  13. CALCIUM [Concomitant]
     Active Substance: CALCIUM
  14. FORMULA 303 [Concomitant]

REACTIONS (4)
  - Skin disorder [None]
  - Pruritus [None]
  - Dandruff [None]
  - Skin swelling [None]

NARRATIVE: CASE EVENT DATE: 20150221
